FAERS Safety Report 9879526 (Version 2)
Quarter: 2014Q1

REPORT INFORMATION
  Report Type: Spontaneous
  Country: GB (occurrence: GB)
  Receive Date: 20140206
  Receipt Date: 20140214
  Transmission Date: 20141002
  Serious: Yes (Life-Threatening, Hospitalization, Disabling)
  Sender: FDA-Public Use
  Company Number: GB-B.I. PHARMACEUTICALS,INC./RIDGEFIELD-2014-BI-05077UK

PATIENT
  Age: 78 Year
  Sex: Male
  Weight: 75 kg

DRUGS (7)
  1. PRADAXA [Suspect]
     Indication: CEREBROVASCULAR ACCIDENT PROPHYLAXIS
     Dosage: 300 MG
     Route: 048
     Dates: start: 20131210, end: 20140130
  2. PRADAXA [Suspect]
     Indication: ATRIAL FIBRILLATION
  3. SALBUTAMOL [Concomitant]
  4. PREGABALIN [Concomitant]
  5. ALLOPURINOL [Concomitant]
  6. PRAVASTATIN [Concomitant]
  7. QUININE SULPHATE [Concomitant]

REACTIONS (2)
  - Myocardial infarction [Not Recovered/Not Resolved]
  - Pulmonary embolism [Not Recovered/Not Resolved]
